FAERS Safety Report 24030589 (Version 1)
Quarter: 2024Q2

REPORT INFORMATION
  Report Type: Spontaneous
  Country: FI (occurrence: None)
  Receive Date: 20240628
  Receipt Date: 20240628
  Transmission Date: 20240716
  Serious: Yes (Hospitalization)
  Sender: FDA-Public Use
  Company Number: 2024A142901

PATIENT
  Age: 78 Year
  Sex: Male

DRUGS (6)
  1. DAPAGLIFLOZIN [Suspect]
     Active Substance: DAPAGLIFLOZIN
     Indication: Cardiac failure
     Dosage: 10 MG / VRK
     Dates: start: 20240315, end: 20240320
  2. HYDREX [Concomitant]
     Dosage: 25 MG /DAY
  3. ESOMEPRAZOLE [Concomitant]
     Active Substance: ESOMEPRAZOLE
     Dosage: 40 MG / DAY
  4. XARELTO [Concomitant]
     Active Substance: RIVAROXABAN
     Indication: Atrial fibrillation
     Dosage: 10 MG / DAY
  5. BISOPROLOL [Concomitant]
     Active Substance: BISOPROLOL\BISOPROLOL FUMARATE
     Dosage: 2.5 MG/DAY
  6. CARDACE [Concomitant]
     Dosage: 10 MG / DAY10.0MG CONTINUOUSLY

REACTIONS (8)
  - Cystitis [Not Recovered/Not Resolved]
  - Bladder cyst [Not Recovered/Not Resolved]
  - Bladder diverticulum [Not Recovered/Not Resolved]
  - Urinary retention [Not Recovered/Not Resolved]
  - Hydronephrosis [Not Recovered/Not Resolved]
  - Micturition disorder [Not Recovered/Not Resolved]
  - Haematuria [Not Recovered/Not Resolved]
  - Bladder trabeculation [Not Recovered/Not Resolved]

NARRATIVE: CASE EVENT DATE: 20240301
